FAERS Safety Report 9927272 (Version 2)
Quarter: 2014Q1

REPORT INFORMATION
  Report Type: Report from Study
  Country: JP (occurrence: JP)
  Receive Date: 20140226
  Receipt Date: 20140226
  Transmission Date: 20141002
  Serious: Yes (Hospitalization)
  Sender: FDA-Public Use
  Company Number: JP-ABBVIE-14P-087-1198873-00

PATIENT
  Age: 45 Year
  Sex: Female

DRUGS (2)
  1. LUPRON DEPOT [Suspect]
     Indication: BREAST CANCER FEMALE
     Route: 058
     Dates: start: 20120203, end: 20120720
  2. TASUOMIN [Concomitant]
     Indication: PRODUCT USED FOR UNKNOWN INDICATION
     Dates: start: 20110613

REACTIONS (1)
  - Uterine leiomyoma [Recovered/Resolved]
